FAERS Safety Report 18590908 (Version 3)
Quarter: 2021Q1

REPORT INFORMATION
  Report Type: Spontaneous
  Country: BR (occurrence: BR)
  Receive Date: 20201208
  Receipt Date: 20210324
  Transmission Date: 20210419
  Serious: Yes (Other)
  Sender: FDA-Public Use
  Company Number: BR-PFIZER INC-2020387494

PATIENT
  Age: 78 Year
  Sex: Male

DRUGS (3)
  1. SUTENT [Suspect]
     Active Substance: SUNITINIB MALATE
     Dosage: UNK
  2. SUTENT [Suspect]
     Active Substance: SUNITINIB MALATE
     Dosage: UNK
  3. SUTENT [Suspect]
     Active Substance: SUNITINIB MALATE
     Dosage: UNK, CYCLIC ((FOR 2 WEEKS WITH 1 WEEK BREAK)
     Dates: start: 20201019, end: 20210222

REACTIONS (20)
  - Drug-induced liver injury [Unknown]
  - Ecchymosis [Unknown]
  - Skin wound [Unknown]
  - Cough [Not Recovered/Not Resolved]
  - Ageusia [Not Recovered/Not Resolved]
  - Motion sickness [Unknown]
  - Discomfort [Not Recovered/Not Resolved]
  - Anaemia [Unknown]
  - Hypersensitivity [Unknown]
  - Hepatic cyst [Unknown]
  - Skin exfoliation [Unknown]
  - Scab [Unknown]
  - Fatigue [Unknown]
  - Skin atrophy [Unknown]
  - Splenic cyst [Unknown]
  - Scratch [Unknown]
  - Skin ulcer [Not Recovered/Not Resolved]
  - Peripheral swelling [Unknown]
  - Yellow skin [Not Recovered/Not Resolved]
  - Decreased appetite [Not Recovered/Not Resolved]

NARRATIVE: CASE EVENT DATE: 2020
